FAERS Safety Report 20616163 (Version 1)
Quarter: 2022Q1

REPORT INFORMATION
  Report Type: Spontaneous
  Country: US (occurrence: US)
  Receive Date: 20220321
  Receipt Date: 20220321
  Transmission Date: 20220423
  Serious: No
  Sender: FDA-Public Use
  Company Number: US-BAYER-2022A037347

PATIENT
  Age: 76 Year
  Sex: Male

DRUGS (1)
  1. GADAVIST [Suspect]
     Active Substance: GADOBUTROL
     Indication: Magnetic resonance imaging renal
     Dosage: UNK UNK, ONCE
     Dates: start: 20220311, end: 20220311

REACTIONS (6)
  - Hypersensitivity [None]
  - Throat tightness [None]
  - Anxiety [None]
  - Pruritus [None]
  - Urticaria [None]
  - Malaise [None]

NARRATIVE: CASE EVENT DATE: 20220311
